FAERS Safety Report 7058612-5 (Version None)
Quarter: 2010Q4

REPORT INFORMATION
  Report Type: 
  Country: None (occurrence: None)
  Receive Date: 20101022
  Receipt Date: 20101015
  Transmission Date: 20110411
  Serious: Yes (Hospitalization)
  Sender: FDA-Public Use
  Company Number: B0669329A

PATIENT
  Sex: Male
  Weight: 54.9 kg

DRUGS (17)
  1. MELPHALAN HYDROCHLORIDE [Suspect]
     Indication: MULTIPLE MYELOMA
     Route: 048
     Dates: start: 20100702
  2. VELCADE [Suspect]
     Indication: MULTIPLE MYELOMA
     Route: 042
     Dates: start: 20100702
  3. PREDNISONE [Suspect]
     Indication: MULTIPLE MYELOMA
     Route: 048
     Dates: start: 20100702
  4. REVLIMID [Suspect]
     Indication: MULTIPLE MYELOMA
     Dosage: 10MG PER DAY
     Route: 048
     Dates: start: 20100308
  5. DEXAMETHASONE [Suspect]
     Indication: MULTIPLE MYELOMA
     Dosage: 80MG PER DAY
     Route: 048
     Dates: start: 20100308
  6. ASPIRIN [Concomitant]
     Indication: THROMBOSIS PROPHYLAXIS
  7. SIMVASTATIN [Concomitant]
     Dosage: 10MG PER DAY
     Route: 048
  8. MULTI-VITAMINS [Concomitant]
     Route: 048
  9. BISOPROLOL [Concomitant]
     Dosage: 10MG PER DAY
     Route: 048
     Dates: start: 19970801
  10. ALDACTAZINE [Concomitant]
     Route: 048
     Dates: start: 20070801
  11. LORAZEPAM [Concomitant]
     Dosage: 1MG PER DAY
     Route: 048
     Dates: start: 20050101
  12. LACTULOSE [Concomitant]
     Indication: CONSTIPATION
     Route: 048
     Dates: start: 20080101
  13. SODIUM PICOSULFATE [Concomitant]
     Indication: CONSTIPATION
     Route: 048
     Dates: start: 20090825, end: 20100723
  14. DOMPERIDONE [Concomitant]
     Route: 048
     Dates: start: 20090823, end: 20100723
  15. DUPHALAC [Concomitant]
     Indication: CONSTIPATION
     Dosage: 10G PER DAY
     Route: 048
     Dates: start: 20100724, end: 20100728
  16. IBUPROFEN [Concomitant]
     Route: 048
     Dates: start: 20091021, end: 20100723
  17. ASAFLOW [Concomitant]
     Indication: THROMBOSIS PROPHYLAXIS
     Dosage: 80MG PER DAY
     Route: 048
     Dates: start: 20090309, end: 20100723

REACTIONS (5)
  - DECREASED APPETITE [None]
  - DIARRHOEA [None]
  - DYSPNOEA EXERTIONAL [None]
  - GENERAL PHYSICAL HEALTH DETERIORATION [None]
  - PYREXIA [None]
